FAERS Safety Report 4784705-9 (Version None)
Quarter: 2005Q3

REPORT INFORMATION
  Report Type: 
  Country: None (occurrence: None)
  Receive Date: 20050929
  Receipt Date: 20050929
  Transmission Date: 20060218
  Serious: Yes (Hospitalization)
  Sender: FDA-Public Use
  Company Number: None

PATIENT
  Age: 61 Year
  Sex: Male
  Weight: 67.9942 kg

DRUGS (2)
  1. MEGACE [Suspect]
     Indication: ANOREXIA
     Dates: start: 20050919, end: 20050926
  2. MEGACE [Suspect]
     Indication: INCREASED APPETITE
     Dates: start: 20050919, end: 20050926

REACTIONS (2)
  - ANTICONVULSANT DRUG LEVEL INCREASED [None]
  - DEPRESSED LEVEL OF CONSCIOUSNESS [None]
